FAERS Safety Report 6355813-6 (Version None)
Quarter: 2009Q3

REPORT INFORMATION
  Report Type: 
  Country: None (occurrence: None)
  Receive Date: 20090915
  Receipt Date: 20090902
  Transmission Date: 20100115
  Serious: Yes (Hospitalization)
  Sender: FDA-Public Use
  Company Number: GB-RANBAXY-2009RR-26368

PATIENT
  Age: 55 Year
  Sex: Male

DRUGS (9)
  1. RANITIDINE [Suspect]
     Dosage: 300 MG, BID
     Route: 048
     Dates: start: 20090716, end: 20090722
  2. BISOPROLOL FUMARATE [Concomitant]
  3. CLOPIDOGREL HYDROGEN SULPHATE [Concomitant]
  4. FRAGMIN [Concomitant]
  5. LOPERAMIDE HYDROCHLORIDE [Concomitant]
  6. NICORANDIL [Concomitant]
  7. QUININE SULPHATE [Concomitant]
  8. SIMVASTATIN [Concomitant]
  9. ZOPICLONE [Concomitant]

REACTIONS (1)
  - RENAL FAILURE ACUTE [None]
